FAERS Safety Report 8849132 (Version 1)
Quarter: 2012Q4

REPORT INFORMATION
  Report Type: 
  Country: ES (occurrence: ES)
  Receive Date: 20121019
  Receipt Date: 20121019
  Transmission Date: 20130627
  Serious: Yes (Death, Hospitalization, Other)
  Sender: FDA-Public Use
  Company Number: PHHY2012ES092209

PATIENT
  Age: 30 Year
  Sex: Male

DRUGS (2)
  1. CICLOSPORIN [Suspect]
     Indication: PROPHYLAXIS AGAINST GRAFT VERSUS HOST DISEASE
  2. METHOTREXATE [Concomitant]
     Indication: PROPHYLAXIS AGAINST GRAFT VERSUS HOST DISEASE

REACTIONS (10)
  - Ventricular fibrillation [Fatal]
  - Ventricular tachycardia [Fatal]
  - Polymyositis [Unknown]
  - Muscular weakness [Unknown]
  - Myalgia [Unknown]
  - Malignant neoplasm progression [Recovered/Resolved]
  - Colitis [Unknown]
  - Diarrhoea [Unknown]
  - Pyrexia [Unknown]
  - Oral lichen planus [Unknown]
